FAERS Safety Report 6984839-4 (Version None)
Quarter: 2010Q3

REPORT INFORMATION
  Report Type: 
  Country: None (occurrence: None)
  Receive Date: 20100910
  Receipt Date: 20100831
  Transmission Date: 20110219
  Serious: Yes (Other)
  Sender: FDA-Public Use
  Company Number: 017247

PATIENT
  Sex: Female
  Weight: 100 kg

DRUGS (6)
  1. CIMZIA [Suspect]
     Indication: RHEUMATOID ARTHRITIS
     Dosage: (200 MG 1X/2 WEEKS SUBCUTANEOUS)
     Route: 058
     Dates: start: 20100729
  2. PREDNISONE [Concomitant]
  3. LEUCOVORIN CALCIUM [Concomitant]
  4. METHOTREXATE [Concomitant]
  5. VITAMIN A [Concomitant]
  6. CALCIUM [Concomitant]

REACTIONS (6)
  - ARTHRALGIA [None]
  - BACK PAIN [None]
  - BURNING SENSATION [None]
  - CONDITION AGGRAVATED [None]
  - PSORIASIS [None]
  - TREATMENT NONCOMPLIANCE [None]
